FAERS Safety Report 10984104 (Version 4)
Quarter: 2019Q1

REPORT INFORMATION
  Report Type: Report from Study
  Country: US (occurrence: US)
  Receive Date: 20150403
  Receipt Date: 20190320
  Transmission Date: 20190417
  Serious: Yes (Death, Hospitalization)
  Sender: FDA-Public Use
  Company Number: US-JNJFOC-20150402477

PATIENT
  Age: 79 Year
  Sex: Male
  Weight: 65 kg

DRUGS (13)
  1. FERROUS SULFATE. [Concomitant]
     Active Substance: FERROUS SULFATE
  2. INSULIN [Concomitant]
     Active Substance: INSULIN NOS
  3. ONDANSETRON [Concomitant]
     Active Substance: ONDANSETRON
  4. CAMPHOR [Concomitant]
     Active Substance: CAMPHOR
  5. FAMOTIDINE. [Concomitant]
     Active Substance: FAMOTIDINE
  6. IBRUTINIB [Suspect]
     Active Substance: IBRUTINIB
     Indication: CHRONIC LYMPHOCYTIC LEUKAEMIA
     Route: 048
     Dates: start: 20150122, end: 20150302
  7. METOPROLOL. [Concomitant]
     Active Substance: METOPROLOL
  8. FLOMAX [Concomitant]
     Active Substance: TAMSULOSIN HYDROCHLORIDE
  9. AMPHOTERICIN B. [Concomitant]
     Active Substance: AMPHOTERICIN B
  10. IBRUTINIB [Suspect]
     Active Substance: IBRUTINIB
     Indication: CHRONIC LYMPHOCYTIC LEUKAEMIA
     Route: 048
     Dates: start: 20141013, end: 201501
  11. POSACONAZOLE [Concomitant]
     Active Substance: POSACONAZOLE
  12. DIPHENOXYLATE HCL + ATROPINE SULFATE [Concomitant]
     Active Substance: ATROPINE SULFATE\DIPHENOXYLATE HYDROCHLORIDE
  13. MIRTAZAPINE. [Concomitant]
     Active Substance: MIRTAZAPINE

REACTIONS (2)
  - Aspergillus infection [Unknown]
  - Death [Fatal]

NARRATIVE: CASE EVENT DATE: 20150103
